FAERS Safety Report 9206293 (Version 1)
Quarter: 2013Q2

REPORT INFORMATION
  Report Type: Spontaneous
  Country: IT (occurrence: None)
  Receive Date: 20130401
  Receipt Date: 20130401
  Transmission Date: 20140414
  Serious: Yes (Hospitalization)
  Sender: FDA-Public Use
  Company Number: 2013-05363

PATIENT
  Age: 40 Year
  Sex: Female

DRUGS (3)
  1. PARACETAMOL (UNKNOWN) (PARACETAMOL) UNK, UNKUNK [Suspect]
     Route: 048
     Dates: start: 20130304, end: 20130308
  2. AMOXICILLIN-CLAVULANATE [Suspect]
     Route: 048
     Dates: start: 20130304, end: 20130308
  3. PARACODINA [Suspect]
     Route: 048
     Dates: start: 20130304, end: 20130308

REACTIONS (5)
  - Urticaria [None]
  - Alanine aminotransferase increased [None]
  - Aspartate aminotransferase increased [None]
  - Blood creatine phosphokinase increased [None]
  - Blood lactate dehydrogenase increased [None]
